FAERS Safety Report 12444914 (Version 1)
Quarter: 2016Q2

REPORT INFORMATION
  Report Type: Spontaneous
  Country: US (occurrence: US)
  Receive Date: 20160607
  Receipt Date: 20160607
  Transmission Date: 20160815
  Serious: No
  Sender: FDA-Public Use
  Company Number: US-GLAXOSMITHKLINE-US2016071011

PATIENT
  Age: 57 Year
  Sex: Female

DRUGS (5)
  1. LAMOTRIGINE TABLET [Suspect]
     Active Substance: LAMOTRIGINE
     Indication: DEPRESSION
     Dosage: 25 MG, QD
     Route: 048
     Dates: start: 20160513
  2. BUPROPION. [Concomitant]
     Active Substance: BUPROPION
  3. LAMOTRIGINE TABLET [Suspect]
     Active Substance: LAMOTRIGINE
     Indication: COGNITIVE DISORDER
  4. MODAFINIL. [Concomitant]
     Active Substance: MODAFINIL
  5. GROWTH HORMONE [Concomitant]
     Active Substance: SOMATROPIN

REACTIONS (5)
  - Fatigue [Unknown]
  - Pruritus [Not Recovered/Not Resolved]
  - Off label use [Unknown]
  - Insomnia [Recovering/Resolving]
  - Dizziness [Unknown]

NARRATIVE: CASE EVENT DATE: 20160513
